FAERS Safety Report 5879614-8 (Version None)
Quarter: 2008Q3

REPORT INFORMATION
  Report Type: 
  Country: None (occurrence: None)
  Receive Date: 20080912
  Receipt Date: 20080114
  Transmission Date: 20090109
  Serious: Yes (Life-Threatening, Hospitalization)
  Sender: FDA-Public Use
  Company Number: EG-ASTRAZENECA-2006SE00437

PATIENT
  Age: 1008 Month
  Sex: Male
  Weight: 80 kg

DRUGS (14)
  1. OMEPRAZOLE [Suspect]
     Indication: ULCER
     Route: 048
     Dates: start: 20041101, end: 20051217
  2. ZOLADEX [Concomitant]
     Indication: PROSTATE CANCER
     Dates: start: 20020101, end: 20040201
  3. OXYBRAL [Concomitant]
     Indication: CARDIOVASCULAR DISORDER
     Dosage: TOTAL DAILY DOSE: 2 PILLS
     Route: 048
     Dates: start: 20030101
  4. BURINEX [Concomitant]
  5. ALDACTONE [Concomitant]
  6. SOLUPRED [Concomitant]
  7. MISOTEC [Concomitant]
  8. MICONAZOLE NITRATE [Concomitant]
  9. MYCOSTATIN [Concomitant]
  10. AMARYL [Concomitant]
  11. LIDOPHAGE [Concomitant]
  12. VASTAREL [Concomitant]
  13. BIOVIT B12 [Concomitant]
  14. SMECTA [Concomitant]

REACTIONS (21)
  - ALANINE AMINOTRANSFERASE INCREASED [None]
  - ANAEMIA MACROCYTIC [None]
  - ANAEMIA MEGALOBLASTIC [None]
  - ASPARTATE AMINOTRANSFERASE INCREASED [None]
  - ASTHENIA [None]
  - CHROMATURIA [None]
  - COLD TYPE HAEMOLYTIC ANAEMIA [None]
  - DEPRESSION [None]
  - DIZZINESS [None]
  - DUODENAL POLYP [None]
  - DYSPNOEA [None]
  - ESCHERICHIA INFECTION [None]
  - GAMMA-GLUTAMYLTRANSFERASE INCREASED [None]
  - HAEMOLYTIC ANAEMIA [None]
  - JAUNDICE [None]
  - LYMPHOPENIA [None]
  - NORMOCHROMIC NORMOCYTIC ANAEMIA [None]
  - POLYURIA [None]
  - RED BLOOD CELL SEDIMENTATION RATE INCREASED [None]
  - SERUM FERRITIN INCREASED [None]
  - VARICES OESOPHAGEAL [None]
